FAERS Safety Report 4344759-0 (Version None)
Quarter: 2004Q2

REPORT INFORMATION
  Report Type: 
  Country: None (occurrence: None)
  Receive Date: 20040423
  Receipt Date: 20030811
  Transmission Date: 20050107
  Serious: Yes (Hospitalization)
  Sender: FDA-Public Use
  Company Number: PHNU2003DE03049

PATIENT
  Sex: Female
  Weight: 70 kg

DRUGS (2)
  1. TRILEPTAL [Suspect]
     Indication: EPILEPSY
     Dosage: 1200 MG/D
     Route: 048
     Dates: start: 19950101
  2. ERGENYL CHRONO [Suspect]
     Indication: EPILEPSY
     Dosage: 2500 MG/D
     Route: 048
     Dates: start: 20010101

REACTIONS (4)
  - CAESAREAN SECTION [None]
  - CONVULSION [None]
  - DRUG EXPOSURE DURING PREGNANCY [None]
  - PREGNANCY [None]
